FAERS Safety Report 8406620-1 (Version None)
Quarter: 2012Q2

REPORT INFORMATION
  Report Type: 
  Country: None (occurrence: None)
  Receive Date: 20120604
  Receipt Date: 20120530
  Transmission Date: 20120825
  Serious: Yes (Hospitalization)
  Sender: FDA-Public Use
  Company Number: US-BAYER-2012-053857

PATIENT
  Age: 53 Year
  Sex: Male

DRUGS (4)
  1. BETASERON [Suspect]
     Indication: MULTIPLE SCLEROSIS
     Dosage: 8 MIU, QOD
     Route: 058
     Dates: start: 20101217
  2. ASPIRIN [Concomitant]
     Dosage: 325 MG, UNK
  3. ISOSORBIDE DINITRATE [Concomitant]
  4. NIASPAN [Concomitant]

REACTIONS (4)
  - HOT FLUSH [None]
  - BACK PAIN [None]
  - FALL [None]
  - PHOTOPSIA [None]
